FAERS Safety Report 6454556-8 (Version None)
Quarter: 2009Q4

REPORT INFORMATION
  Report Type: 
  Country: None (occurrence: None)
  Receive Date: 20091118
  Receipt Date: 20091105
  Transmission Date: 20100525
  Serious: Yes (Other)
  Sender: FDA-Public Use
  Company Number: TRP_06230_2009

PATIENT
  Sex: Female

DRUGS (3)
  1. RIBASPHERE [Suspect]
     Indication: HEPATITIS C
     Dosage: (1000 MG, DAILY)
     Dates: start: 20081116, end: 20090407
  2. PEGASYS [Suspect]
     Indication: HEPATITIS C
     Dosage: (180 UG 1X/WEEK)
     Dates: start: 20081116, end: 20090407
  3. OMEPRAZOLE [Concomitant]

REACTIONS (11)
  - ALOPECIA [None]
  - ANAEMIA [None]
  - DRY SKIN [None]
  - FATIGUE [None]
  - GASTRIC HAEMORRHAGE [None]
  - GASTRITIS [None]
  - OCCULT BLOOD POSITIVE [None]
  - OROPHARYNGEAL PAIN [None]
  - PRURITUS [None]
  - SLEEP DISORDER [None]
  - TONGUE DISCOLOURATION [None]
